FAERS Safety Report 6027317-1 (Version None)
Quarter: 2009Q1

REPORT INFORMATION
  Report Type: 
  Country: None (occurrence: None)
  Receive Date: 20090105
  Receipt Date: 20081229
  Transmission Date: 20090719
  Serious: Yes (Hospitalization)
  Sender: FDA-Public Use
  Company Number: B0509687A

PATIENT
  Age: 71 Year
  Sex: Male
  Weight: 68 kg

DRUGS (9)
  1. VALTREX [Suspect]
     Indication: HERPES ZOSTER
     Route: 048
     Dates: start: 20080219, end: 20080220
  2. ASPIRIN [Concomitant]
     Indication: MYOCARDIAL INFARCTION
     Dosage: 200MG PER DAY
     Route: 048
  3. PANALDINE [Concomitant]
     Indication: MYOCARDIAL INFARCTION
     Dosage: 200MG PER DAY
     Route: 048
  4. WARFARIN SODIUM [Concomitant]
     Indication: MYOCARDIAL INFARCTION
     Dosage: 2MG TWICE PER DAY
     Route: 048
  5. SIGMART [Concomitant]
     Indication: MYOCARDIAL INFARCTION
     Dosage: 15MG PER DAY
     Route: 048
  6. CARDENALIN [Concomitant]
     Indication: HYPERTENSION
     Dosage: 8MG PER DAY
     Route: 048
  7. DIOVAN [Concomitant]
     Indication: HYPERTENSION
     Dosage: 160MG PER DAY
     Route: 048
  8. RENIVACE [Concomitant]
     Indication: HYPERTENSION
     Dosage: 10MG PER DAY
     Route: 048
  9. ADALAT CC [Concomitant]
     Indication: HYPERTENSION
     Dosage: 80MG PER DAY
     Route: 048

REACTIONS (9)
  - ALTERED STATE OF CONSCIOUSNESS [None]
  - DELIRIUM [None]
  - DELUSION [None]
  - ENCEPHALOPATHY [None]
  - GAIT DISTURBANCE [None]
  - HALLUCINATION [None]
  - MUSCULAR WEAKNESS [None]
  - PSYCHIATRIC SYMPTOM [None]
  - TOXIC ENCEPHALOPATHY [None]
